FAERS Safety Report 4891951-2 (Version None)
Quarter: 2006Q1

REPORT INFORMATION
  Report Type: 
  Country: None (occurrence: None)
  Receive Date: 20060126
  Receipt Date: 20050803
  Transmission Date: 20060701
  Serious: Yes (Other)
  Sender: FDA-Public Use
  Company Number: PHEH2005US08638

PATIENT
  Age: 75 Year
  Sex: Female

DRUGS (13)
  1. ZOMETA [Suspect]
     Indication: BREAST CANCER METASTATIC
     Dosage: 4 MG, QMO
     Dates: start: 20020208, end: 20030825
  2. TAMOXIFEN CITRATE [Concomitant]
  3. AROMASIN [Concomitant]
     Indication: BREAST CANCER METASTATIC
     Dosage: 25 MG, UNK
  4. AREDIA [Suspect]
     Indication: BREAST CANCER METASTATIC
     Dosage: 60 MG, QMO
     Dates: start: 20030924, end: 20041108
  5. DOXAZOSIN [Concomitant]
     Dosage: 0.5 UNK, UNK
  6. INSULIN [Concomitant]
  7. NEURONTIN [Concomitant]
     Dosage: 300 UNK, BID
  8. FUROSEMIDE [Concomitant]
     Dosage: 40 MG, UNK
  9. EFFEXOR [Concomitant]
     Dosage: 37.5 MG, UNK
  10. MIRTAZAPINE [Concomitant]
     Dosage: 15 MG, UNK
  11. L-THYROXINE [Concomitant]
     Dosage: 0.112 MG, UNK
  12. FLORINEF [Concomitant]
     Dosage: 0.1 MG, UNK
  13. HYDROCORTISONE [Concomitant]
     Indication: ADRENOCORTICAL INSUFFICIENCY CHRONIC
     Dosage: 20MG QAM, 10MG QPM

REACTIONS (6)
  - BONE DISORDER [None]
  - ORAL SOFT TISSUE DISORDER [None]
  - OSTEONECROSIS [None]
  - PAIN IN JAW [None]
  - PAROTITIS [None]
  - SOFT TISSUE INFECTION [None]
